FAERS Safety Report 6233639-1 (Version None)
Quarter: 2009Q2

REPORT INFORMATION
  Report Type: 
  Country: None (occurrence: None)
  Receive Date: 20090612
  Receipt Date: 20090529
  Transmission Date: 20091009
  Serious: Yes (Other)
  Sender: FDA-Public Use
  Company Number: 2009001621

PATIENT
  Age: 63 Year
  Sex: Female
  Weight: 50.8 kg

DRUGS (7)
  1. ERLOTINIB (ERLOTINIB) (TABLET) (ERLOTINIB) [Suspect]
     Indication: LUNG ADENOCARCINOMA
     Dosage: 150 MG, QD, ORAL
     Route: 048
     Dates: start: 20081108
  2. OXINORM (ORGOTEIN) [Suspect]
     Dosage: .5 MG, ORAL
     Route: 048
     Dates: start: 20081107, end: 20081219
  3. DUROTEP (FENTANYL) [Suspect]
     Dosage: 2.1 MG, TRANSDERMAL
     Route: 062
     Dates: start: 20081119
  4. OXYCONTIN [Concomitant]
  5. NOVAMIN (PROCHLORPERAZINE) [Concomitant]
  6. MAGLAX [Concomitant]
  7. LENDORM [Concomitant]

REACTIONS (5)
  - DIARRHOEA [None]
  - DIZZINESS [None]
  - HYPERTENSION [None]
  - MOOD SWINGS [None]
  - RASH [None]
